FAERS Safety Report 6727677-X (Version None)
Quarter: 2010Q2

REPORT INFORMATION
  Report Type: 
  Country: None (occurrence: None)
  Receive Date: 20100512
  Receipt Date: 20100212
  Transmission Date: 20101027
  Serious: No
  Sender: FDA-Public Use
  Company Number: 1000011825

PATIENT
  Age: 56 Year
  Sex: Female

DRUGS (9)
  1. SAVELLA [Suspect]
     Dosage: SEE IMAGE
     Route: 048
     Dates: start: 20090101, end: 20090101
  2. SAVELLA [Suspect]
     Dosage: SEE IMAGE
     Route: 048
     Dates: start: 20090101, end: 20090101
  3. SAVELLA [Suspect]
     Dosage: SEE IMAGE
     Route: 048
     Dates: start: 20090801, end: 20090801
  4. SAVELLA [Suspect]
     Dosage: SEE IMAGE
     Route: 048
     Dates: start: 20090101
  5. EVISTA [Concomitant]
  6. SEROQUEL [Concomitant]
  7. NEURONTIN [Concomitant]
  8. TIZANIDINE HCL [Concomitant]
  9. METHYLIN [Concomitant]

REACTIONS (2)
  - AGITATION [None]
  - ANXIETY [None]
